FAERS Safety Report 10230048 (Version 1)
Quarter: 2014Q2

REPORT INFORMATION
  Report Type: Spontaneous
  Country: US (occurrence: US)
  Receive Date: 20140611
  Receipt Date: 20140611
  Transmission Date: 20141212
  Serious: No
  Sender: FDA-Public Use
  Company Number: US-ABBVIE-14P-163-1197092-00

PATIENT
  Sex: Female

DRUGS (2)
  1. K-TAB [Suspect]
     Indication: PRODUCT USED FOR UNKNOWN INDICATION
  2. ENABLEX [Interacting]
     Indication: PRODUCT USED FOR UNKNOWN INDICATION

REACTIONS (1)
  - Drug interaction [Unknown]
